FAERS Safety Report 4636014-6 (Version None)
Quarter: 2005Q2

REPORT INFORMATION
  Report Type: 
  Country: None (occurrence: None)
  Receive Date: 20050331
  Receipt Date: 20040116
  Transmission Date: 20051028
  Serious: Yes (Other)
  Sender: FDA-Public Use
  Company Number: 200410272BCC

PATIENT
  Age: 73 Year
  Sex: Male
  Weight: 68.0396 kg

DRUGS (9)
  1. ALEVE [Suspect]
     Indication: PAIN
     Dosage: 440 MG, TOTAL DAILY, ORAL; SEE IMAGE
     Route: 048
     Dates: start: 20040114
  2. ALEVE [Suspect]
     Indication: PAIN
     Dosage: 440 MG, TOTAL DAILY, ORAL; SEE IMAGE
     Route: 048
     Dates: start: 20040115
  3. ZOCOR [Concomitant]
  4. PROCAN [Concomitant]
  5. ALTACE [Concomitant]
  6. DIGITEK [Concomitant]
  7. COREG [Concomitant]
  8. RENAGEL [Concomitant]
  9. COUMADIN [Concomitant]

REACTIONS (1)
  - BLOOD URINE PRESENT [None]
